FAERS Safety Report 8681132 (Version 2)
Quarter: 2013Q4

REPORT INFORMATION
  Report Type: Spontaneous
  Country: US (occurrence: US)
  Receive Date: 20120725
  Receipt Date: 20131106
  Transmission Date: 20140711
  Serious: Yes (Hospitalization)
  Sender: FDA-Public Use
  Company Number: US-009507513-1207USA007601

PATIENT
  Sex: Female

DRUGS (4)
  1. VICTRELIS [Suspect]
     Indication: HEPATITIS C
     Dosage: UNK
     Route: 048
     Dates: start: 20120501
  2. PEGASYS [Suspect]
  3. RIBASPHERE [Suspect]
  4. PROCRIT [Concomitant]

REACTIONS (1)
  - Adverse event [Not Recovered/Not Resolved]
